FAERS Safety Report 8785881 (Version 2)
Quarter: 2012Q4

REPORT INFORMATION
  Report Type: 
  Country: US (occurrence: US)
  Receive Date: 20120914
  Receipt Date: 20121011
  Transmission Date: 20130627
  Serious: Yes (Death)
  Sender: FDA-Public Use
  Company Number: US-ROCHE-1124986

PATIENT
  Sex: Male

DRUGS (9)
  1. AVASTIN [Suspect]
     Indication: PROSTATE CANCER
     Route: 042
     Dates: start: 20070814, end: 20070814
  2. AVASTIN [Suspect]
     Indication: HAEMATOLOGICAL MALIGNANCY
  3. TAXOTERE [Concomitant]
     Route: 042
  4. PROCRIT [Concomitant]
     Dosage: 40000 units
     Route: 058
  5. LASIX [Concomitant]
     Route: 048
  6. PREDNISONE [Concomitant]
     Route: 065
  7. WARFARIN [Concomitant]
     Route: 065
  8. AMIODARONE [Concomitant]
     Route: 065
  9. LEVOTHYROXINE [Concomitant]

REACTIONS (1)
  - Prostate cancer metastatic [Fatal]
